FAERS Safety Report 18559193 (Version 1)
Quarter: 2020Q4

REPORT INFORMATION
  Report Type: Spontaneous
  Country: US (occurrence: US)
  Receive Date: 20201126
  Receipt Date: 20201126
  Transmission Date: 20210114
  Serious: Yes (Hospitalization)
  Sender: FDA-Public Use
  Company Number: None

PATIENT
  Weight: 29.1 kg

DRUGS (3)
  1. ZINECARD [Concomitant]
     Active Substance: DEXRAZOXANE HYDROCHLORIDE
  2. CISPLATIN. [Suspect]
     Active Substance: CISPLATIN
  3. DOXORUBICIN HYDROCHLORIDE. [Concomitant]
     Active Substance: DOXORUBICIN HYDROCHLORIDE

REACTIONS (13)
  - Electrolyte imbalance [None]
  - Hypoacusis [None]
  - Hypophosphataemia [None]
  - Hypomagnesaemia [None]
  - Anaemia [None]
  - Pyrexia [None]
  - Neutropenia [None]
  - Decreased appetite [None]
  - Weight decreased [None]
  - Diarrhoea [None]
  - Thrombocytopenia [None]
  - Dehydration [None]
  - Hyponatraemia [None]

NARRATIVE: CASE EVENT DATE: 20200909
